FAERS Safety Report 10145085 (Version 7)
Quarter: 2014Q4

REPORT INFORMATION
  Report Type: Report from Study
  Country: IT (occurrence: IT)
  Receive Date: 20140501
  Receipt Date: 20141117
  Transmission Date: 20150528
  Serious: No
  Sender: FDA-Public Use
  Company Number: IT-BIOGENIDEC-2014BI039132

PATIENT
  Age: 43 Year
  Sex: Female

DRUGS (4)
  1. NORVASC [Concomitant]
     Active Substance: AMLODIPINE BESYLATE
     Indication: HYPERTENSION
     Dates: start: 20130717
  2. TRIATEC [Concomitant]
     Active Substance: RAMIPRIL
     Indication: HYPERTENSION
     Route: 048
     Dates: start: 20130923
  3. EUTIROX [Concomitant]
     Active Substance: LEVOTHYROXINE SODIUM
     Indication: HYPOTHYROIDISM
     Route: 048
     Dates: start: 20130318
  4. AVONEX [Suspect]
     Active Substance: INTERFERON BETA-1A
     Indication: MULTIPLE SCLEROSIS
     Route: 030
     Dates: start: 20130929, end: 20140413

REACTIONS (4)
  - Drug ineffective [Unknown]
  - Multiple sclerosis relapse [Recovered/Resolved]
  - Functional gastrointestinal disorder [Recovered/Resolved]
  - Bladder dysfunction [Recovered/Resolved]

NARRATIVE: CASE EVENT DATE: 20140310
